FAERS Safety Report 4509806-1 (Version None)
Quarter: 2004Q4

REPORT INFORMATION
  Report Type: 
  Country: None (occurrence: None)
  Receive Date: 20041124
  Receipt Date: 20040806
  Transmission Date: 20050328
  Serious: No
  Sender: FDA-Public Use
  Company Number: US-BRISTOL-MYERS SQUIBB COMPANY-12663894

PATIENT
  Age: 86 Year
  Sex: Male
  Weight: 73 kg

DRUGS (2)
  1. AVALIDE [Suspect]
     Indication: HYPERTENSION
     Route: 048
  2. HYDRODIURIL [Concomitant]

REACTIONS (2)
  - ASTHENIA [None]
  - FATIGUE [None]
